FAERS Safety Report 9769027 (Version 1)
Quarter: 2013Q3

REPORT INFORMATION
  Report Type: Spontaneous
  Country: DE (occurrence: None)
  Receive Date: 20130828
  Receipt Date: 20130828
  Transmission Date: 20140515
  Serious: Yes (Life-Threatening)
  Sender: FDA-Public Use
  Company Number: 062-21880-13054055

PATIENT
  Age: 48 Year
  Sex: Female
  Weight: 55 kg

DRUGS (3)
  1. REVLIMID [Suspect]
     Indication: PLASMA CELL MYELOMA
     Route: 048
     Dates: start: 20120926, end: 20130523
  2. LEVOTHYROXINE [Concomitant]
  3. MOVICOL (NULYTELY) [Concomitant]

REACTIONS (5)
  - Herpes zoster [None]
  - Neuralgia [None]
  - White blood cell count decreased [None]
  - Immunoglobulins decreased [None]
  - Pain [None]
